FAERS Safety Report 16497465 (Version 2)
Quarter: 2019Q3

REPORT INFORMATION
  Report Type: Report from Study
  Country: ID (occurrence: ID)
  Receive Date: 20190628
  Receipt Date: 20190704
  Transmission Date: 20191004
  Serious: Yes (Hospitalization)
  Sender: FDA-Public Use
  Company Number: ID-ASTRAZENECA-2019SE91757

PATIENT
  Sex: Female

DRUGS (2)
  1. TAGRISSO [Suspect]
     Active Substance: OSIMERTINIB
     Indication: NON-SMALL CELL LUNG CANCER
     Route: 048
     Dates: start: 20190329
  2. TAGRISSO [Suspect]
     Active Substance: OSIMERTINIB
     Indication: GENE MUTATION IDENTIFICATION TEST POSITIVE
     Route: 048
     Dates: start: 20190329

REACTIONS (3)
  - Vomiting [Recovered/Resolved]
  - Abdominal pain upper [Recovered/Resolved]
  - Nausea [Recovered/Resolved]
